FAERS Safety Report 18337696 (Version 1)
Quarter: 2020Q4

REPORT INFORMATION
  Report Type: Spontaneous
  Country: IT (occurrence: IT)
  Receive Date: 20201002
  Receipt Date: 20201002
  Transmission Date: 20210113
  Serious: Yes (Hospitalization)
  Sender: FDA-Public Use
  Company Number: IT-TEVA-2020-IT-1832489

PATIENT
  Age: 52 Year
  Sex: Male

DRUGS (2)
  1. LORAZEPAM LEDERLE [Suspect]
     Active Substance: LORAZEPAM
     Indication: DRUG ABUSE
     Dosage: 12.5 MG
     Route: 048
     Dates: start: 20180716, end: 20180716
  2. OLANZAPINE. [Suspect]
     Active Substance: OLANZAPINE
     Indication: DRUG ABUSE
     Dosage: 20 MG
     Route: 048
     Dates: start: 20180716, end: 20180716

REACTIONS (3)
  - Lipase increased [Recovering/Resolving]
  - Hypertransaminasaemia [Recovering/Resolving]
  - Drug abuse [Recovering/Resolving]

NARRATIVE: CASE EVENT DATE: 20180716
